FAERS Safety Report 16847114 (Version 1)
Quarter: 2019Q3

REPORT INFORMATION
  Report Type: Spontaneous
  Country: IT (occurrence: IT)
  Receive Date: 20190924
  Receipt Date: 20190924
  Transmission Date: 20191005
  Serious: Yes (Death, Hospitalization)
  Sender: FDA-Public Use
  Company Number: IT-MYLANLABS-2019M1088933

PATIENT
  Age: 27 Year
  Sex: Male

DRUGS (4)
  1. DIAZEPAM. [Suspect]
     Active Substance: DIAZEPAM
     Indication: MENTAL DISORDER
     Dosage: UNK
     Route: 065
  2. QUETIAPINE. [Suspect]
     Active Substance: QUETIAPINE
     Indication: MENTAL DISORDER
     Dosage: UNK
     Route: 065
  3. CLOTIAPINE [Suspect]
     Active Substance: CLOTHIAPINE
     Indication: MENTAL DISORDER
     Dosage: UNK
     Route: 065
  4. METHADONE [Suspect]
     Active Substance: METHADONE HYDROCHLORIDE
     Indication: MENTAL DISORDER
     Dosage: INCREASED TO 50MG WITHIN 2 DAYS
     Route: 065

REACTIONS (5)
  - Brain oedema [Fatal]
  - Left ventricular hypertrophy [Fatal]
  - Visceral congestion [Fatal]
  - Depressed level of consciousness [Fatal]
  - Pulmonary oedema [Fatal]
